FAERS Safety Report 10709840 (Version 1)
Quarter: 2015Q1

REPORT INFORMATION
  Report Type: Spontaneous
  Country: US (occurrence: None)
  Receive Date: 20150113
  Receipt Date: 20150113
  Transmission Date: 20150721
  Serious: No
  Sender: FDA-Public Use
  Company Number: None

PATIENT
  Age: 60 Year
  Sex: Male

DRUGS (3)
  1. ATORVASTATIN [Concomitant]
     Active Substance: ATORVASTATIN
  2. ENBREL [Concomitant]
     Active Substance: ETANERCEPT
  3. TAMSULOSIN [Suspect]
     Active Substance: TAMSULOSIN
     Indication: BENIGN PROSTATIC HYPERPLASIA
     Dosage: ONE
     Route: 048
     Dates: start: 20150111, end: 20150112

REACTIONS (4)
  - Product quality issue [None]
  - Discomfort [None]
  - No therapeutic response [None]
  - Product substitution issue [None]

NARRATIVE: CASE EVENT DATE: 20150111
